FAERS Safety Report 9394302 (Version 3)
Quarter: 2013Q3

REPORT INFORMATION
  Report Type: Report from Study
  Country: DE (occurrence: DE)
  Receive Date: 20130711
  Receipt Date: 20130812
  Transmission Date: 20140515
  Serious: Yes (Death)
  Sender: FDA-Public Use
  Company Number: DE-ROCHE-1245063

PATIENT
  Age: 70 Year
  Sex: Male
  Weight: 88 kg

DRUGS (4)
  1. BEVACIZUMAB [Suspect]
     Indication: LUNG NEOPLASM MALIGNANT
     Route: 065
     Dates: start: 20130527, end: 20130618
  2. AMPHO-MORONAL [Concomitant]
     Indication: FUNGAL INFECTION
     Dosage: 6 PIPETTE
     Route: 048
     Dates: start: 20130517, end: 20130621
  3. INSULIN [Concomitant]
     Indication: TYPE 2 DIABETES MELLITUS
     Route: 058
     Dates: end: 20130621
  4. NOVALGIN [Concomitant]
     Indication: PAIN
     Dosage: 160 TR
     Route: 048
     Dates: start: 20130517, end: 20130621

REACTIONS (3)
  - Death [Fatal]
  - Pain [Not Recovered/Not Resolved]
  - Oedema peripheral [Not Recovered/Not Resolved]
